FAERS Safety Report 10494134 (Version 1)
Quarter: 2014Q4

REPORT INFORMATION
  Report Type: Spontaneous
  Country: US (occurrence: None)
  Receive Date: 20141002
  Receipt Date: 20141002
  Transmission Date: 20150528
  Serious: No
  Sender: FDA-Public Use
  Company Number: None

PATIENT
  Age: 53 Year
  Sex: Female
  Weight: 46.72 kg

DRUGS (1)
  1. PROPOFOL. [Suspect]
     Active Substance: PROPOFOL
     Indication: SEDATIVE THERAPY
     Dates: start: 20140929, end: 20140929

REACTIONS (5)
  - Photophobia [None]
  - Dry eye [None]
  - Eye pain [None]
  - Eye disorder [None]
  - Pain [None]

NARRATIVE: CASE EVENT DATE: 20140929
